FAERS Safety Report 14336053 (Version 1)
Quarter: 2017Q4

REPORT INFORMATION
  Report Type: Report from Study
  Country: JP (occurrence: JP)
  Receive Date: 20171229
  Receipt Date: 20171229
  Transmission Date: 20180321
  Serious: Yes (Other)
  Sender: FDA-Public Use
  Company Number: PHJP2017JP027662

PATIENT
  Age: 36 Year
  Sex: Male

DRUGS (2)
  1. SIGNIFOR LAR [Suspect]
     Active Substance: PASIREOTIDE
     Indication: GIGANTISM
     Dosage: 40 MG, UNK
     Route: 030
     Dates: start: 20170624
  2. CABERGOLINE. [Concomitant]
     Active Substance: CABERGOLINE
     Indication: GIGANTISM
     Dosage: 4 MG, QW
     Route: 048

REACTIONS (4)
  - Steatorrhoea [Recovered/Resolved]
  - Abdominal pain [Recovered/Resolved]
  - Diarrhoea [Recovered/Resolved]
  - Faeces pale [Recovering/Resolving]

NARRATIVE: CASE EVENT DATE: 20170624
